FAERS Safety Report 12265686 (Version 1)
Quarter: 2016Q2

REPORT INFORMATION
  Report Type: Spontaneous
  Country: US (occurrence: US)
  Receive Date: 20160413
  Receipt Date: 20160413
  Transmission Date: 20160815
  Serious: No
  Sender: FDA-Public Use
  Company Number: US-FERRINGPH-2016FE00642

PATIENT
  Sex: Male

DRUGS (2)
  1. STRATTERA [Concomitant]
     Active Substance: ATOMOXETINE HYDROCHLORIDE
     Indication: PRODUCT USED FOR UNKNOWN INDICATION
     Dosage: 40 MG, 1 TIME DAILY
     Route: 048
  2. DDAVP [Suspect]
     Active Substance: DESMOPRESSIN ACETATE
     Indication: ENURESIS
     Dosage: UNK
     Route: 045
     Dates: start: 2014

REACTIONS (3)
  - Enuresis [Unknown]
  - Condition aggravated [Unknown]
  - Product quality issue [Unknown]
